FAERS Safety Report 8970163 (Version 1)
Quarter: 2012Q4

REPORT INFORMATION
  Report Type: Report from Study
  Country: US (occurrence: US)
  Receive Date: 20121218
  Receipt Date: 20121218
  Transmission Date: 20130627
  Serious: No
  Sender: FDA-Public Use
  Company Number: US-ABBOTT-12P-163-1008225-00

PATIENT
  Sex: Female
  Weight: 85.35 kg

DRUGS (3)
  1. PROMETRIUM [Suspect]
     Indication: HORMONE REPLACEMENT THERAPY
     Dates: start: 2011, end: 201207
  2. PROMETRIUM [Suspect]
     Dates: start: 201207
  3. ESTROGEN [Concomitant]
     Indication: HORMONE REPLACEMENT THERAPY

REACTIONS (1)
  - Weight decreased [Unknown]
